FAERS Safety Report 11422829 (Version 2)
Quarter: 2015Q3

REPORT INFORMATION
  Report Type: Spontaneous
  Country: US (occurrence: US)
  Receive Date: 20150827
  Receipt Date: 20150928
  Transmission Date: 20151125
  Serious: Yes (Hospitalization)
  Sender: FDA-Public Use
  Company Number: US-CTI_01770_2015

PATIENT
  Age: 31 Year
  Sex: Male

DRUGS (2)
  1. AQUADEKS [Concomitant]
     Indication: CYSTIC FIBROSIS
     Dosage: QD
  2. BETHKIS [Suspect]
     Active Substance: TOBRAMYCIN
     Indication: CYSTIC FIBROSIS
     Dosage: 300MG/ 4ML, USE 1 VIAL BID 28 DAYS ON AND 28 DAYS OFF
     Route: 055
     Dates: start: 20150220

REACTIONS (1)
  - Ill-defined disorder [Unknown]

NARRATIVE: CASE EVENT DATE: 20150817
